FAERS Safety Report 7179043-3 (Version None)
Quarter: 2010Q4

REPORT INFORMATION
  Report Type: 
  Country: None (occurrence: None)
  Receive Date: 20101217
  Receipt Date: 20101217
  Transmission Date: 20110411
  Serious: No
  Sender: FDA-Public Use
  Company Number: None

PATIENT
  Sex: Male

DRUGS (2)
  1. OXYCONTIN [Suspect]
     Indication: PAIN
     Dosage: 60MG Q8H PO
     Route: 048
  2. OXYCONTIN [Suspect]
     Dosage: 40MG Q8H PO
     Route: 048

REACTIONS (1)
  - DRUG INTOLERANCE [None]
